FAERS Safety Report 9088897 (Version 2)
Quarter: 2014Q1

REPORT INFORMATION
  Report Type: Report from Study
  Country: CA (occurrence: CA)
  Receive Date: 20130201
  Receipt Date: 20140305
  Transmission Date: 20141002
  Serious: Yes (Other)
  Sender: FDA-Public Use
  Company Number: PHHY2012CA115034

PATIENT
  Age: 34 Year
  Sex: Male

DRUGS (1)
  1. GILENYA [Suspect]
     Indication: RELAPSING-REMITTING MULTIPLE SCLEROSIS
     Dosage: 0.5 MG, QD
     Route: 048
     Dates: start: 20121206

REACTIONS (4)
  - Otitis media [Recovered/Resolved]
  - Fatigue [Recovered/Resolved]
  - Ear infection [Unknown]
  - Dizziness [Recovered/Resolved]
